FAERS Safety Report 8762029 (Version 1)
Quarter: 2012Q4

REPORT INFORMATION
  Report Type: 
  Country: US (occurrence: US)
  Receive Date: 20120830
  Receipt Date: 20120830
  Transmission Date: 20130627
  Serious: Yes (Death, Hospitalization, Other)
  Sender: FDA-Public Use
  Company Number: US-PURDUE-USA-2012-0092099

PATIENT
  Age: 70 Year
  Sex: Male

DRUGS (10)
  1. OXYCODONE HCL TABLETS (91-490) [Suspect]
     Indication: PAIN
     Dosage: UNK, see text
  2. HYDROMORPHONE HYDROCHLORIDE [Suspect]
     Indication: PAIN
  3. DOCUSATE SODIUM [Concomitant]
     Indication: CONSTIPATION
  4. TYLENOL /00020001/ [Concomitant]
     Indication: PRODUCT USED FOR UNKNOWN INDICATION
  5. MEGACE [Concomitant]
     Indication: PRODUCT USED FOR UNKNOWN INDICATION
  6. LACTULOSE [Concomitant]
     Indication: PRODUCT USED FOR UNKNOWN INDICATION
  7. SENNA                              /00142201/ [Concomitant]
     Indication: CONSTIPATION
  8. DURAGESIC                          /00070401/ [Concomitant]
     Indication: PAIN
  9. INOHEP [Concomitant]
     Indication: DEEP VEIN THROMBOSIS
  10. FENTANYL [Concomitant]
     Indication: PAIN

REACTIONS (33)
  - Death [Fatal]
  - Malignant neoplasm progression [Unknown]
  - Delirium [Unknown]
  - Haemorrhoids [Unknown]
  - Dyspnoea [Unknown]
  - Intestinal obstruction [Unknown]
  - Obstruction gastric [Unknown]
  - Pain [Unknown]
  - Constipation [Unknown]
  - Poor quality sleep [Unknown]
  - Decreased appetite [Unknown]
  - Cachexia [Unknown]
  - Epigastric discomfort [Unknown]
  - Abdominal pain [Unknown]
  - Chest pain [Unknown]
  - Back pain [Unknown]
  - Nausea [Unknown]
  - Vomiting [Unknown]
  - Abdominal pain upper [Unknown]
  - Drug effect decreased [Unknown]
  - Cough [Unknown]
  - Palpitations [Unknown]
  - Memory impairment [Unknown]
  - Disorientation [Unknown]
  - Retching [Unknown]
  - Hypophagia [Unknown]
  - Regurgitation [Unknown]
  - Fatigue [Unknown]
  - Abdominal discomfort [Unknown]
  - Ascites [Unknown]
  - Oedema peripheral [Unknown]
  - Pulmonary embolism [Unknown]
  - Refusal of treatment by patient [None]
